FAERS Safety Report 6868645-7 (Version None)
Quarter: 2010Q3

REPORT INFORMATION
  Report Type: 
  Country: None (occurrence: None)
  Receive Date: 20100722
  Receipt Date: 20081003
  Transmission Date: 20110219
  Serious: Yes (Other)
  Sender: FDA-Public Use
  Company Number: US-PFIZER INC-2008042773

PATIENT
  Sex: Female
  Weight: 59 kg

DRUGS (9)
  1. CHANTIX [Suspect]
     Indication: SMOKING CESSATION THERAPY
     Route: 048
     Dates: start: 20080121
  2. NEURONTIN [Concomitant]
  3. XANAX [Concomitant]
  4. CELEBREX [Concomitant]
  5. PREVACID [Concomitant]
  6. NAMENDA [Concomitant]
  7. CALCIUM [Concomitant]
  8. MULTI-VITAMINS [Concomitant]
  9. TYLENOL PM [Concomitant]

REACTIONS (6)
  - ABNORMAL DREAMS [None]
  - BALANCE DISORDER [None]
  - CONSTIPATION [None]
  - FLATULENCE [None]
  - SLEEP DISORDER [None]
  - SOMNOLENCE [None]
